FAERS Safety Report 6570184-8 (Version None)
Quarter: 2010Q1

REPORT INFORMATION
  Report Type: 
  Country: None (occurrence: None)
  Receive Date: 20100202
  Receipt Date: 20100202
  Transmission Date: 20100710
  Serious: Yes (Disabling)
  Sender: FDA-Public Use
  Company Number: None

PATIENT
  Age: 77 Year
  Sex: Male
  Weight: 74.8435 kg

DRUGS (1)
  1. SIMVASTATIN [Suspect]
     Indication: BLOOD CHOLESTEROL INCREASED
     Dosage: 80 MG DAILY PO
     Route: 048
     Dates: start: 20090820, end: 20091010

REACTIONS (4)
  - ABASIA [None]
  - ARTHRALGIA [None]
  - MUSCULAR WEAKNESS [None]
  - PRODUCT QUALITY ISSUE [None]
